FAERS Safety Report 4691574-4 (Version None)
Quarter: 2005Q2

REPORT INFORMATION
  Report Type: 
  Country: None (occurrence: None)
  Receive Date: 20050616
  Receipt Date: 20050523
  Transmission Date: 20051028
  Serious: Yes (Other)
  Sender: FDA-Public Use
  Company Number: US-SOLVAY-00205001811

PATIENT
  Age: 22693 Day
  Sex: Female
  Weight: 64 kg

DRUGS (1)
  1. ESTRATEST H.S. [Suspect]
     Indication: MENOPAUSAL SYMPTOMS
     Dosage: DAILY DOSE:  UNKNOWN
     Route: 048
     Dates: start: 20050131, end: 20050428

REACTIONS (1)
  - NEOPLASM MALIGNANT [None]
